FAERS Safety Report 12921680 (Version 3)
Quarter: 2016Q4

REPORT INFORMATION
  Report Type: Report from Study
  Country: US (occurrence: US)
  Receive Date: 20161108
  Receipt Date: 20161208
  Transmission Date: 20170207
  Serious: Yes (Hospitalization)
  Sender: FDA-Public Use
  Company Number: US-GILEAD-2016-0236599

PATIENT
  Age: 89 Year
  Sex: Female
  Weight: 52 kg

DRUGS (6)
  1. IDELALISIB [Suspect]
     Active Substance: IDELALISIB
     Indication: CHRONIC LYMPHOCYTIC LEUKAEMIA
     Dosage: UNK
     Route: 065
     Dates: start: 20160831
  2. IDELALISIB [Suspect]
     Active Substance: IDELALISIB
     Indication: NON-HODGKIN^S LYMPHOMA
     Dosage: 100 MG, UNK
     Route: 048
  3. IDELALISIB [Suspect]
     Active Substance: IDELALISIB
     Indication: LYMPHOMA
     Dosage: 100 MG, UNK
     Route: 048
     Dates: start: 20160828, end: 20161031
  4. IDELALISIB [Suspect]
     Active Substance: IDELALISIB
     Indication: B-CELL SMALL LYMPHOCYTIC LYMPHOMA
     Dosage: 100 MG, BID
     Route: 048
     Dates: start: 20160829, end: 20161028
  5. ESTRADIOL. [Concomitant]
     Active Substance: ESTRADIOL
     Dosage: HALF A TABLET
  6. IDELALISIB [Suspect]
     Active Substance: IDELALISIB
     Dosage: 100 MG, UNK
     Route: 048
     Dates: start: 201608, end: 201611

REACTIONS (12)
  - Night sweats [Recovering/Resolving]
  - Rectal haemorrhage [Unknown]
  - Renal disorder [Unknown]
  - Dehydration [Unknown]
  - Hot flush [Recovering/Resolving]
  - Fatigue [Unknown]
  - Diarrhoea [Unknown]
  - Liver disorder [Unknown]
  - Depressed mood [Recovering/Resolving]
  - Blood test abnormal [Unknown]
  - Constipation [Unknown]
  - Blood test abnormal [Recovered/Resolved]

NARRATIVE: CASE EVENT DATE: 2016
